FAERS Safety Report 6459943-X (Version None)
Quarter: 2009Q4

REPORT INFORMATION
  Report Type: 
  Country: None (occurrence: None)
  Receive Date: 20091129
  Receipt Date: 20091117
  Transmission Date: 20100525
  Serious: Yes (Other)
  Sender: FDA-Public Use
  Company Number: PHHY2009DE51068

PATIENT
  Age: 75 Year
  Sex: Female

DRUGS (3)
  1. ESTRAGEST TTS [Suspect]
     Dosage: UNK
     Route: 062
     Dates: start: 19940101
  2. DIURETICS [Concomitant]
  3. BETA BLOCKING AGENTS [Concomitant]

REACTIONS (4)
  - CARDIAC FAILURE [None]
  - OBESITY [None]
  - OEDEMA PERIPHERAL [None]
  - SLEEP DISORDER [None]
